FAERS Safety Report 6993069-1 (Version None)
Quarter: 2010Q3

REPORT INFORMATION
  Report Type: 
  Country: None (occurrence: None)
  Receive Date: 20100917
  Receipt Date: 20100520
  Transmission Date: 20110219
  Serious: No
  Sender: FDA-Public Use
  Company Number: US-ASTRAZENECA-2010SE19991

PATIENT
  Age: 21444 Day
  Sex: Female
  Weight: 77.1 kg

DRUGS (8)
  1. SEROQUEL [Suspect]
     Indication: BIPOLAR DISORDER
     Route: 048
     Dates: start: 20100403
  2. SEROQUEL [Suspect]
     Indication: BIPOLAR I DISORDER
     Route: 048
     Dates: start: 20100403
  3. SEROQUEL [Suspect]
     Route: 048
     Dates: start: 20100401, end: 20100501
  4. SEROQUEL [Suspect]
     Route: 048
     Dates: start: 20100401, end: 20100501
  5. CRESTOR [Concomitant]
     Indication: BLOOD CHOLESTEROL
     Route: 048
     Dates: start: 20100501
  6. LEXAPRO [Concomitant]
  7. LITHIUM CARBONATE [Concomitant]
  8. ASPIRIN [Concomitant]
     Indication: STENT PLACEMENT

REACTIONS (9)
  - ASTHENIA [None]
  - CATARACT [None]
  - DIZZINESS [None]
  - DRY MOUTH [None]
  - FATIGUE [None]
  - INCREASED APPETITE [None]
  - LOW DENSITY LIPOPROTEIN INCREASED [None]
  - PHARYNGEAL DISORDER [None]
  - WEIGHT INCREASED [None]
